FAERS Safety Report 5359423-9 (Version None)
Quarter: 2007Q2

REPORT INFORMATION
  Report Type: 
  Country: None (occurrence: None)
  Receive Date: 20070615
  Receipt Date: 20070605
  Transmission Date: 20071010
  Serious: Yes (Other)
  Sender: FDA-Public Use
  Company Number: FR-PFIZER INC-2007039286

PATIENT
  Sex: Female
  Weight: 62 kg

DRUGS (7)
  1. LYRICA [Suspect]
     Indication: FIBROMYALGIA
     Route: 048
     Dates: start: 20070101, end: 20070511
  2. SKENAN [Concomitant]
     Route: 048
  3. SEGLOR [Concomitant]
  4. EQUANIL [Concomitant]
  5. LEXOMIL [Concomitant]
     Route: 048
     Dates: start: 19900101
  6. PRAZINIL [Concomitant]
     Route: 048
  7. PANOS [Concomitant]
     Dates: start: 19900101

REACTIONS (8)
  - AMNESIA [None]
  - ARTHRALGIA [None]
  - DIPLOPIA [None]
  - DRY MOUTH [None]
  - LOSS OF CONSCIOUSNESS [None]
  - MUSCLE SPASMS [None]
  - MYALGIA [None]
  - RENAL PAIN [None]
